FAERS Safety Report 19154720 (Version 2)
Quarter: 2021Q2

REPORT INFORMATION
  Report Type: Spontaneous
  Country: JP (occurrence: JP)
  Receive Date: 20210419
  Receipt Date: 20210505
  Transmission Date: 20210717
  Serious: Yes (Other)
  Sender: FDA-Public Use
  Company Number: JP-TAKEDA-2021TJP016331

PATIENT
  Age: 9 Decade
  Sex: Male

DRUGS (1)
  1. LANSOPRAZOLE OD TAB ^TAKEDA TEVA^ [Suspect]
     Active Substance: LANSOPRAZOLE
     Indication: PRODUCT USED FOR UNKNOWN INDICATION
     Dosage: UNK, A LARGE DOSEDOSAGE IS UNKNOWN
     Route: 048
     Dates: start: 20210309

REACTIONS (2)
  - Overdose [Unknown]
  - Poisoning [Unknown]
